FAERS Safety Report 8544443-3 (Version None)
Quarter: 2012Q3

REPORT INFORMATION
  Report Type: 
  Country: None (occurrence: None)
  Receive Date: 20120717
  Receipt Date: 20120706
  Transmission Date: 20120928
  Serious: Yes (Other)
  Sender: FDA-Public Use
  Company Number: ADR-2012-01287

PATIENT
  Sex: Male

DRUGS (1)
  1. LIORESAL [Suspect]
     Dosage: 724.3 MCG/DAY

REACTIONS (2)
  - IMPLANT SITE ERYTHEMA [None]
  - IMPLANT SITE INFECTION [None]
